FAERS Safety Report 5871861-4 (Version None)
Quarter: 2008Q3

REPORT INFORMATION
  Report Type: 
  Country: None (occurrence: None)
  Receive Date: 20080904
  Receipt Date: 20080904
  Transmission Date: 20090109
  Serious: Yes (Other)
  Sender: FDA-Public Use
  Company Number: None

PATIENT
  Age: 51 Year
  Sex: Female
  Weight: 61.2356 kg

DRUGS (1)
  1. CYMBALTA [Suspect]
     Indication: NERVE INJURY
     Dosage: 30MG FOR FIRST TWO WEEKS/60MG PO
     Route: 048
     Dates: start: 20080726, end: 20080818

REACTIONS (15)
  - AMNESIA [None]
  - CONDITION AGGRAVATED [None]
  - DRUG WITHDRAWAL SYNDROME [None]
  - HEADACHE [None]
  - INFLUENZA LIKE ILLNESS [None]
  - INJURY [None]
  - MEMORY IMPAIRMENT [None]
  - MUSCLE TWITCHING [None]
  - MYALGIA [None]
  - NEURALGIA [None]
  - NIGHTMARE [None]
  - PAIN IN JAW [None]
  - PALPITATIONS [None]
  - PARAESTHESIA [None]
  - VISION BLURRED [None]
